FAERS Safety Report 7303959-8 (Version None)
Quarter: 2011Q1

REPORT INFORMATION
  Report Type: 
  Country: None (occurrence: None)
  Receive Date: 20110221
  Receipt Date: 20110207
  Transmission Date: 20110831
  Serious: Yes (Death)
  Sender: FDA-Public Use
  Company Number: AT-ABBOTT-11P-009-0706280-00

PATIENT
  Sex: Male

DRUGS (1)
  1. SIXANTONE [Suspect]
     Indication: PROSTATE CANCER
     Route: 058
     Dates: start: 20100101, end: 20100701

REACTIONS (2)
  - PROSTATE CANCER [None]
  - NEOPLASM MALIGNANT [None]
